FAERS Safety Report 23702855 (Version 1)
Quarter: 2024Q2

REPORT INFORMATION
  Report Type: Spontaneous
  Country: DE (occurrence: DE)
  Receive Date: 20240403
  Receipt Date: 20240403
  Transmission Date: 20240716
  Serious: Yes (Other)
  Sender: FDA-Public Use
  Company Number: DE-862174955-ML2024-01944

PATIENT
  Sex: Female

DRUGS (1)
  1. AMITRIPTYLINE [Suspect]
     Active Substance: AMITRIPTYLINE
     Indication: Product used for unknown indication
     Dosage: 25 JAN 2024- STARTED TAKING 10 MG TWICE DAILY04 MAR 2024 AND 05 MAR 2024- TOOK 10 MG ONCE DAILY IN O
     Route: 048
     Dates: start: 20240125, end: 20240306

REACTIONS (1)
  - VIth nerve paralysis [Not Recovered/Not Resolved]

NARRATIVE: CASE EVENT DATE: 20240301
